FAERS Safety Report 8321581-1 (Version None)
Quarter: 2012Q2

REPORT INFORMATION
  Report Type: 
  Country: None (occurrence: None)
  Receive Date: 20120430
  Receipt Date: 20120417
  Transmission Date: 20120825
  Serious: Yes (Other)
  Sender: FDA-Public Use
  Company Number: FR-FRI-1000030083

PATIENT
  Sex: Female

DRUGS (4)
  1. ATARAX [Concomitant]
     Dates: start: 20100901
  2. ESCITALOPRAM [Suspect]
     Dosage: 1 DF
     Route: 048
     Dates: start: 20100701
  3. ZOLPIDEM TARTRATE [Concomitant]
     Dates: start: 20100801
  4. TOPIRAMATE [Suspect]
     Indication: SYNCOPE
     Dosage: 50 MG
     Route: 048
     Dates: start: 20100621

REACTIONS (1)
  - SPEECH DISORDER [None]
